FAERS Safety Report 4478700-7 (Version None)
Quarter: 2004Q3

REPORT INFORMATION
  Report Type: 
  Country: None (occurrence: None)
  Receive Date: 20040923
  Receipt Date: 20040603
  Transmission Date: 20050211
  Serious: No
  Sender: FDA-Public Use
  Company Number: USA040669246

PATIENT
  Age: 75 Year
  Sex: Female

DRUGS (2)
  1. FORTEO [Suspect]
     Indication: OSTEOPOROSIS
     Dosage: 20 UG DAY
     Dates: start: 20040301
  2. PREVACID [Concomitant]

REACTIONS (4)
  - BRONCHITIS [None]
  - MUSCLE CRAMP [None]
  - PHARYNGOLARYNGEAL PAIN [None]
  - ROSACEA [None]
